FAERS Safety Report 7323049-8 (Version None)
Quarter: 2011Q1

REPORT INFORMATION
  Report Type: 
  Country: None (occurrence: None)
  Receive Date: 20110301
  Receipt Date: 20110224
  Transmission Date: 20110831
  Serious: Yes (Other)
  Sender: FDA-Public Use
  Company Number: DE-PFIZER INC-2011041227

PATIENT
  Age: 72 Year
  Sex: Female

DRUGS (2)
  1. CHAMPIX [Suspect]
     Indication: SMOKING CESSATION THERAPY
     Dosage: 0.5 MG, UNK
     Route: 048
     Dates: start: 20110130
  2. CHAMPIX [Suspect]
     Route: 048

REACTIONS (6)
  - ROAD TRAFFIC ACCIDENT [None]
  - TREMOR [None]
  - HEADACHE [None]
  - FATIGUE [None]
  - COORDINATION ABNORMAL [None]
  - NAUSEA [None]
